FAERS Safety Report 6082290-5 (Version None)
Quarter: 2009Q1

REPORT INFORMATION
  Report Type: 
  Country: None (occurrence: None)
  Receive Date: 20090126
  Receipt Date: 20081008
  Transmission Date: 20090719
  Serious: Yes (Other)
  Sender: FDA-Public Use
  Company Number: 277431

PATIENT
  Age: 77 Year
  Sex: Male

DRUGS (2)
  1. NOVOLOG [Suspect]
     Indication: INSULIN-REQUIRING TYPE 2 DIABETES MELLITUS
     Dosage: 35 LU, QD, SUBCUTANEOUS
     Route: 058
     Dates: start: 20080501
  2. LEVEMIR [Suspect]
     Indication: INSULIN-REQUIRING TYPE 2 DIABETES MELLITUS
     Dosage: 35 LU, QD, SUBCUTANEOUS
     Route: 058
     Dates: start: 20080501

REACTIONS (1)
  - HYPOGLYCAEMIC UNCONSCIOUSNESS [None]
